FAERS Safety Report 11253934 (Version 2)
Quarter: 2015Q3

REPORT INFORMATION
  Report Type: Spontaneous
  Country: US (occurrence: BR)
  Receive Date: 20150709
  Receipt Date: 20150922
  Transmission Date: 20151125
  Serious: Yes (Hospitalization, Other)
  Sender: FDA-Public Use
  Company Number: US-BIOGENIDEC-2015BI094096

PATIENT
  Sex: Female

DRUGS (3)
  1. AVONEX [Suspect]
     Active Substance: INTERFERON BETA-1A
     Indication: MULTIPLE SCLEROSIS
     Route: 030
     Dates: start: 2004
  2. BACLOFEN. [Concomitant]
     Active Substance: BACLOFEN
     Indication: MUSCLE RELAXANT THERAPY
     Route: 048
  3. ATENOLOL. [Concomitant]
     Active Substance: ATENOLOL
     Indication: HYPERTENSION
     Route: 048

REACTIONS (13)
  - Cerebrovascular accident [Unknown]
  - Scar [Unknown]
  - Gait disturbance [Not Recovered/Not Resolved]
  - Foot deformity [Not Recovered/Not Resolved]
  - Feeling cold [Recovered/Resolved]
  - Pyrexia [Recovered/Resolved]
  - Pain [Unknown]
  - Muscle spasms [Unknown]
  - Headache [Unknown]
  - Suture related complication [Unknown]
  - Ankle fracture [Unknown]
  - Haemangioma [Unknown]
  - Infection [Unknown]

NARRATIVE: CASE EVENT DATE: 2004
